FAERS Safety Report 23530552 (Version 1)
Quarter: 2024Q1

REPORT INFORMATION
  Report Type: Spontaneous
  Country: NL (occurrence: NL)
  Receive Date: 20240216
  Receipt Date: 20240216
  Transmission Date: 20240410
  Serious: Yes (Life-Threatening, Disabling, Other)
  Sender: FDA-Public Use
  Company Number: NL-LRB-00944733

PATIENT
  Age: 35 Year
  Sex: Female
  Weight: 135 kg

DRUGS (10)
  1. HYDROCHLOROTHIAZIDE [Suspect]
     Active Substance: HYDROCHLOROTHIAZIDE
     Indication: Cardiac disorder
     Dosage: 50 MILLIGRAM, ONCE A DAY1 X 1 OVERDAG()
     Route: 065
     Dates: start: 20200101
  2. GLICLAZIDE [Suspect]
     Active Substance: GLICLAZIDE
     Indication: Diabetes mellitus
     Dosage: UNK
     Route: 065
     Dates: start: 20200101
  3. METOPROLOL [Suspect]
     Active Substance: METOPROLOL
     Indication: Cardiac disorder
     Dosage: 400 MG
     Route: 065
     Dates: start: 20200101
  4. METFORMIN HYDROCHLORIDE [Suspect]
     Active Substance: METFORMIN HYDROCHLORIDE
     Indication: Diabetes mellitus
     Dosage: 1000 MILLIGRAM, UNK(3 X PER DAG 1 STUK)
     Route: 065
     Dates: start: 20200101
  5. LEVOTHYROXINE [Suspect]
     Active Substance: LEVOTHYROXINE\LEVOTHYROXINE SODIUM
     Indication: Graves^ disease
     Dosage: 100 MICROGRAM, ONCE A DAY(1 X 1 PER DAG)
     Route: 065
     Dates: start: 20200101
  6. ARIPIPRAZOLE [Suspect]
     Active Substance: ARIPIPRAZOLE
     Indication: Product used for unknown indication
     Dosage: 1 DOSAGE FORM(1 X PER 25 DAGEN 1 INJECTIE)
     Route: 065
     Dates: start: 20230202
  7. CARBASPIRIN CALCIUM [Suspect]
     Active Substance: CARBASPIRIN CALCIUM
     Indication: Cardiac disorder
     Dosage: 100 MILLIGRAM, ONCE A DAY 1 X 1 KEER PER DAG
     Route: 065
     Dates: start: 20201007
  8. OXAZEPAM [Concomitant]
     Active Substance: OXAZEPAM
     Indication: Product used for unknown indication
     Dosage: UNK
     Route: 065
  9. LORAZEPAM [Concomitant]
     Active Substance: LORAZEPAM
     Indication: Product used for unknown indication
     Dosage: UNK
     Route: 065
  10. BIPERIDEN [Concomitant]
     Active Substance: BIPERIDEN
     Indication: Product used for unknown indication
     Dosage: UNK
     Route: 065

REACTIONS (5)
  - Swelling [Unknown]
  - Dysphagia [Unknown]
  - Dyspnoea [Unknown]
  - Chest pain [Unknown]
  - Cardiac disorder [Unknown]
